FAERS Safety Report 16664242 (Version 1)
Quarter: 2019Q3

REPORT INFORMATION
  Report Type: Spontaneous
  Country: NZ (occurrence: NZ)
  Receive Date: 20190802
  Receipt Date: 20190802
  Transmission Date: 20191004
  Serious: Yes (Hospitalization)
  Sender: FDA-Public Use
  Company Number: NZ-MYLANLABS-2019M1030526

PATIENT
  Age: 43 Year
  Sex: Male

DRUGS (1)
  1. CLOZARIL [Suspect]
     Active Substance: CLOZAPINE
     Indication: SCHIZOPHRENIA
     Dosage: UNK
     Route: 048
     Dates: start: 20120323

REACTIONS (2)
  - Haemoglobin decreased [Unknown]
  - Hospitalisation [Unknown]

NARRATIVE: CASE EVENT DATE: 20181217
